FAERS Safety Report 5015534-9 (Version None)
Quarter: 2006Q2

REPORT INFORMATION
  Report Type: 
  Country: None (occurrence: None)
  Receive Date: 20060425
  Receipt Date: 20060202
  Transmission Date: 20061013
  Serious: No
  Sender: FDA-Public Use
  Company Number: 2006-BP-01287BP

PATIENT
  Sex: Male

DRUGS (2)
  1. APTIVUS [Suspect]
     Indication: HIV INFECTION
     Dosage: 1000 MG (500 MG BID),PO
     Route: 048
     Dates: start: 20050301
  2. RITONVAIR CAPSULES [Suspect]

REACTIONS (1)
  - STOMATITIS [None]
